FAERS Safety Report 9424681 (Version 2)
Quarter: 2013Q3

REPORT INFORMATION
  Report Type: Spontaneous
  Country: US (occurrence: None)
  Receive Date: 20130725
  Receipt Date: 20130809
  Transmission Date: 20140515
  Serious: Yes (Hospitalization, Other)
  Sender: FDA-Public Use
  Company Number: JPI-P-033881

PATIENT
  Age: 55 Year
  Sex: Male

DRUGS (1)
  1. XYREM [Suspect]
     Indication: HYPERSOMNIA
     Dosage: 6GM (3GM, 2 IN 1D) ORAL
     Route: 048
     Dates: start: 20040206

REACTIONS (3)
  - Spinal fusion surgery [None]
  - Staphylococcal infection [None]
  - Post procedural infection [None]
